FAERS Safety Report 10998387 (Version 1)
Quarter: 2015Q2

REPORT INFORMATION
  Report Type: Spontaneous
  Country: DE (occurrence: None)
  Receive Date: 20150406
  Receipt Date: 20150406
  Transmission Date: 20150821
  Serious: Yes (Hospitalization)
  Sender: FDA-Public Use
  Company Number: DE-20150064

PATIENT
  Age: 42 Year
  Sex: Female
  Weight: 70 kg

DRUGS (1)
  1. DOTAREM [Suspect]
     Active Substance: GADOTERATE MEGLUMINE
     Indication: NUCLEAR MAGNETIC RESONANCE IMAGING
     Dosage: 14 ML (14 ML, 1 IN 1 D), INTRAVENOUS (NOT OTHERWISE SPECIFIED)??44 SECONDS
     Route: 042
     Dates: start: 20150325, end: 20150325

REACTIONS (3)
  - Blood pressure decreased [None]
  - Chills [None]
  - Dyspnoea [None]

NARRATIVE: CASE EVENT DATE: 20150325
